FAERS Safety Report 24933320 (Version 1)
Quarter: 2025Q1

REPORT INFORMATION
  Report Type: Spontaneous
  Country: US (occurrence: US)
  Receive Date: 20250206
  Receipt Date: 20250206
  Transmission Date: 20250409
  Serious: No
  Sender: ALKEM
  Company Number: US-ALKEM LABORATORIES LIMITED-US-ALKEM-2024-05496

PATIENT
  Age: 28 Year

DRUGS (1)
  1. GABAPENTIN [Suspect]
     Active Substance: GABAPENTIN
     Indication: Product used for unknown indication
     Route: 065

REACTIONS (5)
  - Bradykinesia [Unknown]
  - Disturbance in attention [Unknown]
  - Road traffic accident [Unknown]
  - Coordination abnormal [Unknown]
  - Amnesia [Unknown]
